FAERS Safety Report 5913338-3 (Version None)
Quarter: 2008Q4

REPORT INFORMATION
  Report Type: 
  Country: None (occurrence: None)
  Receive Date: 20081009
  Receipt Date: 20080929
  Transmission Date: 20090506
  Serious: Yes (Other)
  Sender: FDA-Public Use
  Company Number: PHHY2008JP20605

PATIENT
  Age: 75 Year
  Sex: Female
  Weight: 70 kg

DRUGS (6)
  1. EXJADE [Suspect]
     Indication: SERUM FERRITIN INCREASED
     Dosage: 1000 MG/DAY
     Route: 048
     Dates: start: 20080807, end: 20080819
  2. EXJADE [Suspect]
     Indication: HAEMOSIDEROSIS
  3. EXJADE [Suspect]
     Indication: PANCYTOPENIA
  4. RED BLOOD CELLS TRANSFUSION [Concomitant]
     Dosage: TRANSFUSION EVERY 7 TO 10 DAYS
  5. LIPITOR [Concomitant]
     Dosage: 1 TABLET/DAY
  6. BLOPRESS [Concomitant]
     Dosage: 1 TABLET/DAY

REACTIONS (9)
  - ALANINE AMINOTRANSFERASE INCREASED [None]
  - ASPARTATE AMINOTRANSFERASE INCREASED [None]
  - BLOOD ALKALINE PHOSPHATASE INCREASED [None]
  - GAMMA-GLUTAMYLTRANSFERASE INCREASED [None]
  - HAEMOGLOBIN DECREASED [None]
  - PANCYTOPENIA [None]
  - PETECHIAE [None]
  - PLATELET COUNT DECREASED [None]
  - WHITE BLOOD CELL COUNT DECREASED [None]
